FAERS Safety Report 6435921-1 (Version None)
Quarter: 2009Q4

REPORT INFORMATION
  Report Type: 
  Country: None (occurrence: None)
  Receive Date: 20091110
  Receipt Date: 20091110
  Transmission Date: 20100525
  Serious: No
  Sender: FDA-Public Use
  Company Number: None

PATIENT
  Age: 84 Year
  Sex: Male
  Weight: 78.02 kg

DRUGS (2)
  1. PERCOCET [Suspect]
     Indication: PAIN
     Dosage: 1 TAB PRN PO
     Route: 048
     Dates: start: 20090421, end: 20090605
  2. FENTANYL-100 [Suspect]
     Dosage: 50 MCG OTHER TOP
     Route: 061
     Dates: start: 20090501, end: 20090626

REACTIONS (2)
  - CONFUSIONAL STATE [None]
  - DELIRIUM [None]
